FAERS Safety Report 4846089-7 (Version None)
Quarter: 2005Q4

REPORT INFORMATION
  Report Type: 
  Country: None (occurrence: None)
  Receive Date: 20051201
  Receipt Date: 20051118
  Transmission Date: 20060501
  Serious: Yes (Life-Threatening, Disabling, Other)
  Sender: FDA-Public Use
  Company Number: 2005159839

PATIENT
  Sex: Male
  Weight: 90.7194 kg

DRUGS (13)
  1. VANTIN [Suspect]
     Indication: GRAFT INFECTION
     Dosage: 400 MG (200 MG, 2 IN 1 D), ORAL
     Route: 048
     Dates: start: 19930101
  2. PLAVIX [Suspect]
     Indication: ANTICOAGULANT THERAPY
     Dates: start: 19950101, end: 20000101
  3. DILANTIN [Suspect]
     Indication: CONVULSION
     Dates: start: 20000101, end: 20020101
  4. COUMADIN [Suspect]
     Indication: ANTICOAGULANT THERAPY
     Dates: start: 20000101
  5. TOPROL-XL [Suspect]
     Indication: BLOOD PRESSURE
     Dates: start: 20000101
  6. NORVASC [Suspect]
     Indication: BLOOD PRESSURE
     Dates: start: 20030101
  7. TEGRETOL [Suspect]
     Indication: CONVULSION
     Dates: start: 20000101
  8. ZOCOR [Suspect]
     Indication: BLOOD CHOLESTEROL INCREASED
     Dates: start: 20000101
  9. HYDROCHLOROTHIAZIDE [Suspect]
     Indication: ILL-DEFINED DISORDER
     Dates: start: 20030101
  10. LISINOPRIL [Suspect]
     Indication: ILL-DEFINED DISORDER
     Dates: start: 20030101
  11. CELEXA [Suspect]
     Indication: ANXIETY
     Dates: start: 20000101
  12. FLONASE [Suspect]
     Indication: SINUS DISORDER
     Dates: start: 20020101
  13. CATAPRES-TTS-1 [Suspect]
     Indication: ILL-DEFINED DISORDER
     Dates: start: 20020101

REACTIONS (17)
  - ANEURYSM [None]
  - ANXIETY [None]
  - BLOOD CHOLESTEROL INCREASED [None]
  - CEREBROVASCULAR ACCIDENT [None]
  - CONVULSION [None]
  - DIARRHOEA [None]
  - DRUG INTERACTION [None]
  - FACIAL BONES FRACTURE [None]
  - FALL [None]
  - GRAND MAL CONVULSION [None]
  - KIDNEY INFECTION [None]
  - MYOCARDIAL INFARCTION [None]
  - PARALYSIS [None]
  - PROSTATE CANCER [None]
  - SINUS DISORDER [None]
  - SPINAL FRACTURE [None]
  - TRANSIENT ISCHAEMIC ATTACK [None]
